FAERS Safety Report 5449826-6 (Version None)
Quarter: 2007Q3

REPORT INFORMATION
  Report Type: 
  Country: None (occurrence: None)
  Receive Date: 20070831
  Receipt Date: 20070817
  Transmission Date: 20080115
  Serious: No
  Sender: FDA-Public Use
  Company Number: 2250051-2007-00500

PATIENT
  Sex: Female

DRUGS (1)
  1. RHOGAM [Suspect]
     Indication: PREGNANCY
     Dosage: 300 UG 1X IM
     Route: 030

REACTIONS (2)
  - HEPATITIS C VIRUS [None]
  - PHARMACEUTICAL PRODUCT COMPLAINT [None]
